FAERS Safety Report 5941263-0 (Version None)
Quarter: 2008Q4

REPORT INFORMATION
  Report Type: 
  Country: None (occurrence: None)
  Receive Date: 20081103
  Receipt Date: 20081103
  Transmission Date: 20090506
  Serious: Yes (Other)
  Sender: FDA-Public Use
  Company Number: None

PATIENT
  Sex: Female
  Weight: 64.4108 kg

DRUGS (1)
  1. ABILIFY [Suspect]
     Indication: BIPOLAR I DISORDER
     Dosage: ONCE A DAY
     Dates: start: 20060201, end: 20060601

REACTIONS (9)
  - DEPRESSED MOOD [None]
  - FRUSTRATION [None]
  - HEADACHE [None]
  - MUSCLE SPASMS [None]
  - MUSCLE STRAIN [None]
  - PAIN [None]
  - PERIARTHRITIS [None]
  - SLEEP DISORDER [None]
  - TIC [None]
